FAERS Safety Report 5666831-5 (Version None)
Quarter: 2008Q1

REPORT INFORMATION
  Report Type: 
  Country: None (occurrence: None)
  Receive Date: 20080315
  Receipt Date: 20071228
  Transmission Date: 20080703
  Serious: No
  Sender: FDA-Public Use
  Company Number: US-ABBOTT-08P-163-0432121-00

PATIENT
  Sex: Female
  Weight: 64.014 kg

DRUGS (1)
  1. HUMIRA [Suspect]
     Indication: PSORIATIC ARTHROPATHY
     Route: 058
     Dates: start: 20071205, end: 20071205

REACTIONS (8)
  - DYSURIA [None]
  - ERYTHEMA [None]
  - FEELING HOT [None]
  - LYMPHADENOPATHY [None]
  - LYMPHOCYTE COUNT DECREASED [None]
  - MEAN CELL HAEMOGLOBIN INCREASED [None]
  - MUSCULOSKELETAL STIFFNESS [None]
  - URTICARIA [None]
